FAERS Safety Report 9845340 (Version 1)
Quarter: 2014Q1

REPORT INFORMATION
  Report Type: Spontaneous
  Country: US (occurrence: None)
  Receive Date: 20140122
  Receipt Date: 20140122
  Transmission Date: 20141002
  Serious: Yes (Other)
  Sender: FDA-Public Use
  Company Number: 2014-US-000284

PATIENT
  Age: 41 Year
  Sex: Female

DRUGS (2)
  1. XYREM [Suspect]
     Indication: NARCOLEPSY
     Route: 048
     Dates: start: 201011
  2. XYREM [Suspect]
     Indication: CATAPLEXY
     Route: 048
     Dates: start: 201011

REACTIONS (1)
  - Cholecystectomy [None]
